FAERS Safety Report 8983037 (Version 2)
Quarter: 2013Q1

REPORT INFORMATION
  Report Type: Spontaneous
  Country: KR (occurrence: KR)
  Receive Date: 20121221
  Receipt Date: 20130213
  Transmission Date: 20140127
  Serious: Yes (Other)
  Sender: FDA-Public Use
  Company Number: KR-ABBOTT-12P-090-1025490-00

PATIENT
  Age: 9 Year
  Sex: Female
  Weight: 35 kg

DRUGS (1)
  1. LEUPLIN [Suspect]
     Indication: PRECOCIOUS PUBERTY
     Route: 042
     Dates: start: 20120112, end: 20121005

REACTIONS (1)
  - Abscess [Unknown]
